FAERS Safety Report 14742169 (Version 4)
Quarter: 2021Q3

REPORT INFORMATION
  Report Type: Spontaneous
  Country: US (occurrence: US)
  Receive Date: 20180410
  Receipt Date: 20210728
  Transmission Date: 20211014
  Serious: Yes (Other)
  Sender: FDA-Public Use
  Company Number: US-ASTRAZENECA-2018SE42836

PATIENT
  Age: 25011 Day
  Sex: Male
  Weight: 106.6 kg

DRUGS (37)
  1. NEXIUM [Suspect]
     Active Substance: ESOMEPRAZOLE MAGNESIUM
     Indication: BARRETT^S OESOPHAGUS
     Route: 048
     Dates: start: 1992, end: 2018
  2. ZANTAC [Concomitant]
     Active Substance: RANITIDINE HYDROCHLORIDE
  3. NEXIUM [Suspect]
     Active Substance: ESOMEPRAZOLE MAGNESIUM
     Indication: BARRETT^S OESOPHAGUS
     Route: 048
     Dates: start: 2008
  4. VITAMIN K2 [Concomitant]
     Active Substance: MENAQUINONE 6
  5. COLCHICINE. [Concomitant]
     Active Substance: COLCHICINE
  6. DOXAZOSIN [Concomitant]
     Active Substance: DOXAZOSIN MESYLATE
  7. CARDIZEM [Concomitant]
     Active Substance: DILTIAZEM HYDROCHLORIDE
  8. HYDROCHLOROTHIAZIDE. [Concomitant]
     Active Substance: HYDROCHLOROTHIAZIDE
  9. FISH OIL [Concomitant]
     Active Substance: FISH OIL
  10. CLARITIN [Concomitant]
     Active Substance: LORATADINE
  11. METAMUCIL [Concomitant]
     Active Substance: PLANTAGO SEED
  12. METFORMIN [Concomitant]
     Active Substance: METFORMIN HYDROCHLORIDE
  13. PRILOSEC [Concomitant]
     Active Substance: OMEPRAZOLE MAGNESIUM
  14. AMLODIPINE BESYLATE. [Concomitant]
     Active Substance: AMLODIPINE BESYLATE
  15. FLUZONE [Concomitant]
     Active Substance: INFLUENZA A VIRUS A/CALIFORNIA/7/2009 X-179A (H1N1) ANTIGEN (FORMALDEHYDE INACTIVATED)\INFLUENZA A VIRUS A/VICTORIA/210/2009 X-187 (H3N2) ANTIGEN (FORMALDEHYDE INACTIVATED)\INFLUENZA B VIRUS B/BRISBANE/60/2008 ANTIGEN (FORMALDEHYDE INACTIVATED)
  16. PANTOPRAZOLE [Suspect]
     Active Substance: PANTOPRAZOLE
     Indication: GASTROOESOPHAGEAL REFLUX DISEASE
     Dosage: GENERIC
     Route: 065
     Dates: start: 2018
  17. ACIPHEX [Suspect]
     Active Substance: RABEPRAZOLE SODIUM
     Indication: BARRETT^S OESOPHAGUS
     Route: 065
     Dates: start: 2003, end: 2007
  18. VITAMIN D [Concomitant]
     Active Substance: VITAMIN D NOS
  19. NEXIUM [Suspect]
     Active Substance: ESOMEPRAZOLE MAGNESIUM
     Indication: BARRETT^S OESOPHAGUS
     Route: 048
     Dates: start: 20080417
  20. INSPRA [Concomitant]
     Active Substance: EPLERENONE
  21. ALLOPURINOL. [Concomitant]
     Active Substance: ALLOPURINOL
  22. VITAMIN D3 [Concomitant]
     Active Substance: CHOLECALCIFEROL
  23. LIPITOR [Concomitant]
     Active Substance: ATORVASTATIN CALCIUM
  24. AMERTIL [Concomitant]
     Active Substance: CETIRIZINE HYDROCHLORIDE
  25. CLONIDINE. [Concomitant]
     Active Substance: CLONIDINE
  26. COREG [Concomitant]
     Active Substance: CARVEDILOL
  27. NIFEDIPINE. [Concomitant]
     Active Substance: NIFEDIPINE
  28. DIOVAN/HYDROCHLOROTHIAZIDE [Concomitant]
  29. DIOVAN [Concomitant]
     Active Substance: VALSARTAN
  30. TOPROL XL [Concomitant]
     Active Substance: METOPROLOL SUCCINATE
  31. LIDOCAINE HYDROCHLORIDE. [Concomitant]
     Active Substance: LIDOCAINE HYDROCHLORIDE
  32. PANTOPRAZOLE [Suspect]
     Active Substance: PANTOPRAZOLE
     Indication: BARRETT^S OESOPHAGUS
     Dosage: GENERIC
     Route: 065
     Dates: start: 2018
  33. ISRADIPINE. [Concomitant]
     Active Substance: ISRADIPINE
  34. BYETTA [Concomitant]
     Active Substance: EXENATIDE
  35. POTASSIUM CHLORIDE. [Concomitant]
     Active Substance: POTASSIUM CHLORIDE
  36. PROPOFOL. [Concomitant]
     Active Substance: PROPOFOL
  37. TRAMADOL. [Concomitant]
     Active Substance: TRAMADOL

REACTIONS (2)
  - Renal failure [Unknown]
  - Chronic kidney disease [Not Recovered/Not Resolved]

NARRATIVE: CASE EVENT DATE: 20160323
